FAERS Safety Report 9181044 (Version 1)
Quarter: 2013Q1

REPORT INFORMATION
  Report Type: Spontaneous
  Country: AU (occurrence: AU)
  Receive Date: 20130322
  Receipt Date: 20130322
  Transmission Date: 20140127
  Serious: Yes (Other)
  Sender: FDA-Public Use
  Company Number: PHHY2013AU027467

PATIENT
  Age: 74 Year
  Sex: Female

DRUGS (4)
  1. ACLASTA [Suspect]
     Dosage: UNK
     Route: 042
  2. ATACAND [Concomitant]
     Dosage: UNK
  3. CITRACAL [Concomitant]
     Dosage: UNK
  4. SOMAC [Concomitant]
     Dosage: UNK

REACTIONS (9)
  - Reye^s syndrome [Unknown]
  - Red blood cell sedimentation rate increased [Unknown]
  - Pyrexia [Unknown]
  - Arthralgia [Unknown]
  - C-reactive protein increased [Unknown]
  - Dysgeusia [Unknown]
  - Joint swelling [Unknown]
  - Nausea [Unknown]
  - Swelling [Unknown]
